FAERS Safety Report 10088982 (Version 2)
Quarter: 2014Q2

REPORT INFORMATION
  Report Type: Spontaneous
  Country: FR (occurrence: FR)
  Receive Date: 20140421
  Receipt Date: 20140421
  Transmission Date: 20141212
  Serious: Yes (Other)
  Sender: FDA-Public Use
  Company Number: PHHY2014FR034703

PATIENT
  Age: 59 Year
  Sex: Male
  Weight: 78 kg

DRUGS (2)
  1. GLIVEC [Suspect]
     Indication: CHRONIC MYELOID LEUKAEMIA
     Dosage: 400 MG, DAILY
     Route: 048
     Dates: start: 201211, end: 201402
  2. LUMIGAN [Concomitant]
     Indication: GLAUCOMA
     Dosage: 1 DROP, QD IN THE EVENNING
     Route: 047
     Dates: start: 201105

REACTIONS (2)
  - Haematemesis [Recovered/Resolved]
  - Muscle spasms [Recovered/Resolved]
